FAERS Safety Report 5017084-2 (Version None)
Quarter: 2006Q2

REPORT INFORMATION
  Report Type: 
  Country: None (occurrence: None)
  Receive Date: 20060525
  Receipt Date: 20060503
  Transmission Date: 20061013
  Serious: Yes (Hospitalization)
  Sender: FDA-Public Use
  Company Number: US200605000762

PATIENT
  Age: 30 Year
  Sex: Female

DRUGS (6)
  1. HUMALOG PEN [Suspect]
     Indication: DIABETES MELLITUS
  2. CYMBALTA [Suspect]
  3. METFORMIN [Concomitant]
  4. AVANDIA [Concomitant]
  5. NEURONTIN [Concomitant]
  6. CLONAZEPAM [Concomitant]

REACTIONS (4)
  - BLOOD GLUCOSE INCREASED [None]
  - DEHYDRATION [None]
  - DRUG EXPOSURE DURING PREGNANCY [None]
  - PREGNANCY [None]
